FAERS Safety Report 22070977 (Version 1)
Quarter: 2023Q1

REPORT INFORMATION
  Report Type: Report from Study
  Country: JP (occurrence: JP)
  Receive Date: 20230307
  Receipt Date: 20230307
  Transmission Date: 20230418
  Serious: Yes (Other)
  Sender: FDA-Public Use
  Company Number: JP-ferring-EVA202001157FERRINGPH

PATIENT

DRUGS (1)
  1. DESMOPRESSIN [Suspect]
     Active Substance: DESMOPRESSIN
     Indication: Nocturia
     Dosage: 50 UG
     Route: 065
     Dates: start: 20201112, end: 20201118

REACTIONS (2)
  - Hypochloraemia [Recovered/Resolved]
  - Hyponatraemia [Recovered/Resolved]

NARRATIVE: CASE EVENT DATE: 20201118
